FAERS Safety Report 9347965 (Version 1)
Quarter: 2013Q2

REPORT INFORMATION
  Report Type: Spontaneous
  Country: CN (occurrence: CN)
  Receive Date: 20130614
  Receipt Date: 20130614
  Transmission Date: 20140414
  Serious: Yes (Hospitalization)
  Sender: FDA-Public Use
  Company Number: CN-JNJFOC-20130602701

PATIENT
  Age: 30 Year
  Sex: Female
  Weight: 46 kg

DRUGS (4)
  1. PARACETAMOL [Suspect]
     Route: 048
  2. PARACETAMOL [Suspect]
     Indication: NASOPHARYNGITIS
     Route: 048
     Dates: start: 20120826, end: 20120828
  3. ACETAMINOPHEN/DEXTROMETHORPHAN/PSEUDOEPHEDRINE [Suspect]
     Indication: NASOPHARYNGITIS
     Route: 048
     Dates: start: 20120826, end: 20120828
  4. CEFACLOR [Suspect]
     Indication: NASOPHARYNGITIS
     Route: 065

REACTIONS (4)
  - Liver injury [Recovering/Resolving]
  - Alanine aminotransferase increased [None]
  - Aspartate aminotransferase increased [None]
  - Blood bilirubin increased [None]
